FAERS Safety Report 8476640 (Version 5)
Quarter: 2013Q1

REPORT INFORMATION
  Report Type: Spontaneous
  Country: US (occurrence: US)
  Receive Date: 20120326
  Receipt Date: 20130118
  Transmission Date: 20140127
  Serious: Yes (Hospitalization, Other)
  Sender: FDA-Public Use
  Company Number: US-009507513-1203USA02839

PATIENT
  Sex: 0

DRUGS (9)
  1. FOSAMAX [Suspect]
     Indication: OSTEOPENIA
     Dosage: 5 MG, UNK
     Route: 048
     Dates: start: 19981119, end: 200111
  2. FOSAMAX [Suspect]
     Indication: OSTEOPOROSIS
     Dosage: 10 MG, UNK
     Route: 048
     Dates: start: 200111, end: 200112
  3. FOSAMAX [Suspect]
     Dosage: 70 MG, UNK
     Route: 048
     Dates: start: 20020118, end: 200803
  4. ALENDRONATE SODIUM [Suspect]
     Indication: OSTEOPENIA
     Dosage: 70 MG, UNK
     Route: 048
     Dates: start: 20080218
  5. ALENDRONATE SODIUM [Suspect]
     Indication: OSTEOPOROSIS
  6. CALCIUM (UNSPECIFIED) [Concomitant]
     Dosage: 600 MG, BID
     Dates: start: 1995
  7. VITAMINS (UNSPECIFIED) [Concomitant]
     Dosage: UNK UNK, QD
     Dates: start: 1995
  8. ZYRTEC [Concomitant]
     Indication: HYPERSENSITIVITY
     Dosage: UNK
     Dates: start: 2005, end: 2007
  9. ATENOLOL [Concomitant]
     Indication: HYPERTENSION

REACTIONS (60)
  - Femur fracture [Unknown]
  - Femur fracture [Unknown]
  - Femur fracture [Unknown]
  - Femur fracture [Unknown]
  - Femur fracture [Unknown]
  - Femur fracture [Unknown]
  - Neurostimulator implantation [Unknown]
  - Cholecystectomy [Unknown]
  - Hysterectomy [Unknown]
  - Renal failure chronic [Not Recovered/Not Resolved]
  - Surgery [Unknown]
  - Gastritis [Unknown]
  - Endodontic procedure [Unknown]
  - Fall [Unknown]
  - Hypercholesterolaemia [Unknown]
  - Adverse event [Unknown]
  - Adverse event [Unknown]
  - Low turnover osteopathy [Unknown]
  - Hypertonic bladder [Unknown]
  - Hypothyroidism [Unknown]
  - Kyphoscoliosis [Unknown]
  - Transient ischaemic attack [Recovered/Resolved]
  - Mitral valve incompetence [Unknown]
  - Aortic valve sclerosis [Unknown]
  - Aortic valve incompetence [Unknown]
  - Biopsy breast [Unknown]
  - Biopsy breast [Unknown]
  - Upper-airway cough syndrome [Unknown]
  - Nasal congestion [Unknown]
  - Cough [Unknown]
  - Mitral valve prolapse [Unknown]
  - Cardiac failure congestive [Unknown]
  - Stress urinary incontinence [Unknown]
  - Aortic dilatation [Unknown]
  - Radicular syndrome [Unknown]
  - Depression [Unknown]
  - Osteoarthritis [Unknown]
  - Asthma [Unknown]
  - Post laminectomy syndrome [Unknown]
  - Chronic obstructive pulmonary disease [Not Recovered/Not Resolved]
  - Pain [Not Recovered/Not Resolved]
  - Post laminectomy syndrome [Unknown]
  - Pyelonephritis [Unknown]
  - Tricuspid valve incompetence [Unknown]
  - Pulmonary hypertension [Unknown]
  - Leukocytosis [Unknown]
  - Aortic calcification [Unknown]
  - Cardiomegaly [Unknown]
  - Wound infection staphylococcal [Unknown]
  - Rhinitis [Unknown]
  - Anaemia [Unknown]
  - Gastritis [Not Recovered/Not Resolved]
  - Oesophageal stenosis [Not Recovered/Not Resolved]
  - Back pain [Not Recovered/Not Resolved]
  - Diarrhoea [Unknown]
  - Gastrooesophageal reflux disease [Unknown]
  - Intervertebral disc disorder [Unknown]
  - Spinal osteoarthritis [Unknown]
  - Open reduction of fracture [Unknown]
  - Open reduction of fracture [Unknown]
